FAERS Safety Report 4661008-4 (Version None)
Quarter: 2005Q2

REPORT INFORMATION
  Report Type: 
  Country: None (occurrence: None)
  Receive Date: 20050511
  Receipt Date: 20050428
  Transmission Date: 20051028
  Serious: Yes (Life-Threatening, Other)
  Sender: FDA-Public Use
  Company Number: 2005067271

PATIENT
  Age: 48 Year
  Sex: Female
  Weight: 113.3993 kg

DRUGS (17)
  1. DEPO-PROVERA [Suspect]
     Indication: ENDOMETRIOSIS
     Dosage: FIRST INJECTION/EVERY 3 MONTHS; EVERY 6 WEEKS
     Dates: start: 19940101, end: 19940101
  2. CELEBREX [Suspect]
     Indication: ASTHENIA
     Dates: start: 20001101
  3. OXYCODONE HCL [Concomitant]
  4. VERAPAMIL [Concomitant]
  5. CIBADREX   CIBA-GEIGY   (BENAZEPRIL HYDROCHLORIDE, HYDROCHLOROTHIAZIDE [Concomitant]
  6. DULOXETINE HYDROCHLORIDE (DULOXETINE HYDROCHLORIDE) [Concomitant]
  7. MODAFINIL [Concomitant]
  8. RESPAIRE-SR-120 (GUAIFENESIN, PSEUDOEPHEDRINE HYDROCHLORIDE) [Concomitant]
  9. DIPHENHYDRAMINE HCL [Concomitant]
  10. ESOMEPRAZOLE (ESOMEPRAZOLE) [Concomitant]
  11. CODEINE PHOSPHATE AND ACETAMINOPHEN [Concomitant]
  12. CARISOPRODOL [Concomitant]
  13. DIAZEPAM [Concomitant]
  14. ESTROGEN NOS (ESTROGEN NOS) [Concomitant]
  15. PROPACET 100 [Concomitant]
  16. MECLOZINE (MECLOZINE) [Concomitant]
  17. PHENAZOPYRIDINE HYDROCHLORIDE (PHENAZOPYRIDINE HYDROCHLORIDE) [Concomitant]

REACTIONS (25)
  - BRAIN NEOPLASM [None]
  - CERVICAL SPINAL STENOSIS [None]
  - CHRONIC FATIGUE SYNDROME [None]
  - CONSTIPATION [None]
  - DIFFICULTY IN WALKING [None]
  - DRUG INEFFECTIVE [None]
  - ENDOMETRIOSIS [None]
  - FIBROMYALGIA [None]
  - GASTROOESOPHAGEAL REFLUX DISEASE [None]
  - HAEMATOMA [None]
  - HYPERTENSION [None]
  - INTERVERTEBRAL DISC DEGENERATION [None]
  - INTERVERTEBRAL DISC PROTRUSION [None]
  - LUMBAR SPINAL STENOSIS [None]
  - MENINGEAL NEOPLASM [None]
  - NERVOUS SYSTEM DISORDER [None]
  - PAIN [None]
  - PAIN IN EXTREMITY [None]
  - PROGESTERONE RECEPTOR ASSAY POSITIVE [None]
  - SKULL FRACTURE [None]
  - SLEEP APNOEA SYNDROME [None]
  - SPEECH DISORDER [None]
  - TREMOR [None]
  - VERTIGO [None]
  - VICTIM OF CRIME [None]
